FAERS Safety Report 9179753 (Version 1)
Quarter: 2012Q4

REPORT INFORMATION
  Report Type: 
  Country: US (occurrence: US)
  Receive Date: 20121029
  Receipt Date: 20121029
  Transmission Date: 20130627
  Serious: No
  Sender: FDA-Public Use
  Company Number: US-AMGEN-USASP2012057414

PATIENT
  Age: 45 Year
  Sex: Male

DRUGS (9)
  1. ENBREL [Suspect]
     Indication: ANKYLOSING SPONDYLITIS
     Dosage: 50 mg, qwk
     Route: 058
  2. PRILOSEC                           /00661201/ [Concomitant]
     Dosage: 20 mg, UNK
     Route: 048
  3. LISINOPRIL                         /00894002/ [Concomitant]
     Dosage: 10 mg, UNK
     Route: 048
  4. OXYCONTIN [Concomitant]
     Dosage: 10 mg, UNK
     Route: 048
  5. OXYCODONE W/APAP [Concomitant]
     Dosage: 5-500 mg
     Route: 048
  6. VALIUM                             /00017001/ [Concomitant]
     Dosage: 10 mg, UNK
     Route: 048
  7. AMBIEN [Concomitant]
     Dosage: 5 mg, UNK
     Route: 048
  8. LYRICA [Concomitant]
     Dosage: 100 mg, UNK
     Route: 048
  9. VITAMIN B [Concomitant]
     Dosage: 50 UNK, UNK
     Route: 048

REACTIONS (4)
  - Nausea [Unknown]
  - Diarrhoea [Unknown]
  - Injection site bruising [Unknown]
  - Injection site haemorrhage [Unknown]
